FAERS Safety Report 8077052-3 (Version None)
Quarter: 2012Q1

REPORT INFORMATION
  Report Type: 
  Country: None (occurrence: None)
  Receive Date: 20120127
  Receipt Date: 20120118
  Transmission Date: 20120608
  Serious: Yes (Hospitalization)
  Sender: FDA-Public Use
  Company Number: PHHY2011US49346

PATIENT
  Sex: Female

DRUGS (3)
  1. NEORAL [Suspect]
     Indication: LIVER TRANSPLANT
     Dosage: 150 MG, BID
     Route: 048
  2. NEORAL [Suspect]
     Indication: RENAL TRANSPLANT
     Dosage: 125 MG, QD
     Route: 048
  3. NEORAL [Suspect]
     Dosage: 125 MG, BID
     Route: 048

REACTIONS (7)
  - BLOOD PRESSURE INCREASED [None]
  - ANKLE FRACTURE [None]
  - ARTHRALGIA [None]
  - THROMBOSIS [None]
  - BLOOD GLUCOSE INCREASED [None]
  - FALL [None]
  - RENAL DISORDER [None]
